FAERS Safety Report 5045560-5 (Version None)
Quarter: 2006Q3

REPORT INFORMATION
  Report Type: 
  Country: None (occurrence: None)
  Receive Date: 20060707
  Receipt Date: 20041102
  Transmission Date: 20061208
  Serious: Yes (Hospitalization, Disabling)
  Sender: FDA-Public Use
  Company Number: US-ROCHE-385211

PATIENT
  Age: 20 Year
  Sex: Male
  Weight: 98 kg

DRUGS (2)
  1. ACCUTANE [Suspect]
     Indication: ACNE
     Route: 048
     Dates: start: 19971110, end: 19980615
  2. ACCUTANE [Suspect]
     Route: 048
     Dates: start: 19980123

REACTIONS (32)
  - ABDOMINAL PAIN [None]
  - ANGIOPATHY [None]
  - ANHEDONIA [None]
  - ANXIETY [None]
  - BACK PAIN [None]
  - BRONCHITIS [None]
  - CELLULITIS [None]
  - COLITIS [None]
  - COLITIS ULCERATIVE [None]
  - CONSTIPATION [None]
  - DEPRESSION [None]
  - DISTURBANCE IN ATTENTION [None]
  - DRUG ABUSER [None]
  - GASTROINTESTINAL DISORDER [None]
  - HAEMORRHOIDS [None]
  - INFLAMMATORY BOWEL DISEASE [None]
  - INJURY [None]
  - INTESTINAL HAEMORRHAGE [None]
  - MULTI-ORGAN DISORDER [None]
  - NECK PAIN [None]
  - PAIN [None]
  - POST PROCEDURAL HAEMORRHAGE [None]
  - PROCTITIS [None]
  - RECTAL HAEMORRHAGE [None]
  - RHINITIS [None]
  - SEMEN ABNORMAL [None]
  - SEMEN VOLUME ABNORMAL [None]
  - SPERM COUNT DECREASED [None]
  - TESTICULAR PAIN [None]
  - TONSILLITIS [None]
  - VARICOCELE [None]
  - VASODILATATION [None]
